FAERS Safety Report 17638437 (Version 1)
Quarter: 2020Q2

REPORT INFORMATION
  Report Type: Spontaneous
  Country: CH (occurrence: CH)
  Receive Date: 20200407
  Receipt Date: 20200407
  Transmission Date: 20200713
  Serious: Yes (Hospitalization)
  Sender: FDA-Public Use
  Company Number: CH-009507513-2004CHE000173

PATIENT
  Sex: Female

DRUGS (6)
  1. RANOLAZINE HYDROCHLORIDE [Suspect]
     Active Substance: RANOLAZINE HYDROCHLORIDE
     Dosage: 500 MILLIGRAM, Q12H
  2. GYNOFLOR (ESTRIOL (+) LACTOBACILLUS ACIDOPHILUS) [Concomitant]
     Dosage: UNK
  3. ASPIRIN CARDIO [Suspect]
     Active Substance: ASPIRIN
     Dosage: 1 DOSAGE FORM, Q24H
     Route: 048
     Dates: end: 20200310
  4. ASPIRIN CARDIO [Suspect]
     Active Substance: ASPIRIN
     Dosage: 1 DOSAGE FORM, Q24H
     Route: 048
     Dates: start: 202003
  5. ATOZET [Suspect]
     Active Substance: ATORVASTATIN CALCIUM\EZETIMIBE
     Dosage: 1 DOSAGE FORM, Q24H
     Route: 048
  6. ESCITALOPRAM OXALATE. [Concomitant]
     Active Substance: ESCITALOPRAM OXALATE
     Dosage: 10 MILLIGRAM, Q24H
     Route: 048

REACTIONS (1)
  - Reactive gastropathy [Unknown]

NARRATIVE: CASE EVENT DATE: 20200317
